FAERS Safety Report 7628224-0 (Version None)
Quarter: 2011Q3

REPORT INFORMATION
  Report Type: 
  Country: None (occurrence: None)
  Receive Date: 20110722
  Receipt Date: 20110121
  Transmission Date: 20111222
  Serious: Yes (Death, Other)
  Sender: FDA-Public Use
  Company Number: US-BAYER-201039767NA

PATIENT
  Age: 77 Year
  Sex: Female
  Weight: 69 kg

DRUGS (30)
  1. NORVASC [Concomitant]
     Dosage: 5 MG, QD
     Route: 048
     Dates: start: 20060801
  2. EPINEPHRINE [Concomitant]
     Dosage: 1 MG, UNK
  3. REGLAN [Concomitant]
     Dosage: 5 MG, BID-QID
     Route: 048
     Dates: start: 20061214
  4. LISINOPRIL [Concomitant]
     Dosage: 10 MG, QD
     Route: 048
     Dates: end: 20060515
  5. IMDUR [Concomitant]
     Dosage: 60 MG, UNK
     Route: 048
     Dates: start: 20060309
  6. PROTAMINE SULFATE [Concomitant]
     Dosage: 250 MG, UNK
  7. ATROPINE [Concomitant]
     Dosage: 0.8 MG, UNK
  8. TRASYLOL [Suspect]
     Dosage: 50 ML/HR, INFUSION
     Route: 042
     Dates: start: 20060519, end: 20060519
  9. IBUPROFEN (ADVIL) [Concomitant]
     Dosage: PRN
     Route: 048
  10. ZOCOR [Concomitant]
     Dosage: 20 MG, QD
     Route: 048
  11. LYRICA [Concomitant]
     Dosage: 25 MG, BID
     Route: 048
     Dates: start: 20060801
  12. VANCOMYCIN [Concomitant]
     Dosage: UNK
     Route: 042
     Dates: start: 20070612, end: 20070613
  13. PLAVIX [Concomitant]
     Dosage: 75 MG, UNK
     Route: 048
     Dates: start: 20060309
  14. VERSED [Concomitant]
     Dosage: 20 MG, UNK
     Route: 042
     Dates: start: 20060519, end: 20060519
  15. PHENYLEPHRINE HCL [Concomitant]
     Dosage: 10 MG / 250 ML
  16. TRASYLOL [Suspect]
     Dosage: 200 ML PUMP PRIME DOSE
     Route: 042
     Dates: start: 20060519, end: 20060519
  17. ASPIRIN [Concomitant]
     Dosage: 325 MG, UNK
     Route: 048
     Dates: start: 20061214
  18. NITROGLYCERIN [Concomitant]
     Dosage: 30 ML, VIAL
  19. TRASYLOL [Suspect]
     Indication: CORONARY ARTERY BYPASS
     Dosage: 200 ML, LOADING DOSE
     Route: 042
     Dates: start: 20060519, end: 20060519
  20. TYLENOL REGULAR [Concomitant]
     Dosage: PRN
     Route: 048
  21. DIOVAN [Concomitant]
     Dosage: 320 MG, QD
     Route: 048
     Dates: start: 20060801
  22. GENTAMICIN [Concomitant]
     Dosage: UNK
     Route: 042
     Dates: start: 20070612, end: 20070614
  23. ANCEF [Concomitant]
     Dosage: 2 G, UNK
  24. HEPARIN [Concomitant]
     Dosage: 10 ML, UNK
  25. CARVEDILOL [Concomitant]
     Dosage: 25 MG, BID
     Route: 048
  26. HYDRALAZINE HCL [Concomitant]
     Dosage: 10 MG, UNK
     Route: 048
  27. FENTANYL [Concomitant]
     Dosage: 500 MICROGRAMS
  28. LIDOCAINE [Concomitant]
     Dosage: 100 MG, UNK
  29. NAPROXEN (ALEVE) [Concomitant]
     Dosage: PRN
     Route: 048
  30. SYNTHROID [Concomitant]
     Dosage: 0.1 MG, QD
     Route: 048
     Dates: start: 20060508

REACTIONS (11)
  - ANXIETY [None]
  - RENAL FAILURE [None]
  - UNEVALUABLE EVENT [None]
  - FEAR [None]
  - RENAL IMPAIRMENT [None]
  - MULTI-ORGAN FAILURE [None]
  - PAIN [None]
  - RENAL INJURY [None]
  - STRESS [None]
  - DEATH [None]
  - EMOTIONAL DISTRESS [None]
